FAERS Safety Report 12914848 (Version 2)
Quarter: 2017Q1

REPORT INFORMATION
  Report Type: Spontaneous
  Country: US (occurrence: US)
  Receive Date: 20161106
  Receipt Date: 20170216
  Transmission Date: 20170428
  Serious: No
  Sender: FDA-Public Use
  Company Number: US-RELYPSA-RLY2016002082

PATIENT
  Sex: Female

DRUGS (8)
  1. VELTASSA [Suspect]
     Active Substance: PATIROMER
     Indication: BLOOD POTASSIUM INCREASED
     Dosage: 8.4 G, QD
     Route: 048
     Dates: start: 20160719, end: 2016
  2. LOVENOX [Concomitant]
     Active Substance: ENOXAPARIN SODIUM
  3. METOPROLOL. [Concomitant]
     Active Substance: METOPROLOL
  4. LANTUS [Concomitant]
     Active Substance: INSULIN GLARGINE
  5. VELTASSA [Suspect]
     Active Substance: PATIROMER
     Dosage: 16.8 G, QD
     Route: 048
     Dates: start: 2016
  6. LASIX [Concomitant]
     Active Substance: FUROSEMIDE
  7. VELTASSA [Suspect]
     Active Substance: PATIROMER
     Dosage: 8.4 G, REDUCED FREQUENCY
     Route: 048
     Dates: start: 2016, end: 2016
  8. HUMALOG [Concomitant]
     Active Substance: INSULIN LISPRO

REACTIONS (4)
  - Muscle spasms [Recovered/Resolved]
  - Drug administration error [Not Recovered/Not Resolved]
  - Adverse event [Unknown]
  - Palpitations [Recovered/Resolved]

NARRATIVE: CASE EVENT DATE: 2016
